FAERS Safety Report 25117543 (Version 1)
Quarter: 2025Q1

REPORT INFORMATION
  Report Type: Spontaneous
  Country: AR (occurrence: AR)
  Receive Date: 20250325
  Receipt Date: 20250325
  Transmission Date: 20250409
  Serious: Yes (Death)
  Sender: GENMAB
  Company Number: AR-ABBVIE-6148283

PATIENT
  Sex: Male

DRUGS (1)
  1. EPCORITAMAB [Suspect]
     Active Substance: EPCORITAMAB
     Indication: Diffuse large B-cell lymphoma
     Route: 058

REACTIONS (3)
  - Illness [Fatal]
  - Therapeutic product effect decreased [Fatal]
  - Cytokine release syndrome [Unknown]
